FAERS Safety Report 14705628 (Version 3)
Quarter: 2018Q2

REPORT INFORMATION
  Report Type: Spontaneous
  Country: EG (occurrence: EG)
  Receive Date: 20180402
  Receipt Date: 20180411
  Transmission Date: 20180711
  Serious: Yes (Life-Threatening, Hospitalization, Other)
  Sender: FDA-Public Use
  Company Number: PHHY2018EG057424

PATIENT
  Sex: Female

DRUGS (2)
  1. VOTRIENT [Suspect]
     Active Substance: PAZOPANIB HYDROCHLORIDE
     Indication: SARCOMA
     Dosage: 800 MG, QD
     Route: 048
  2. VOTRIENT [Suspect]
     Active Substance: PAZOPANIB HYDROCHLORIDE
     Dosage: 400 MG, QD
     Route: 048
     Dates: start: 20180315, end: 20180324

REACTIONS (9)
  - Chest discomfort [Unknown]
  - Orthopnoea [Unknown]
  - Pulmonary oedema [Recovered/Resolved with Sequelae]
  - Cough [Unknown]
  - Asphyxia [Unknown]
  - Jugular vein distension [Unknown]
  - Dyspnoea [Unknown]
  - Oedema peripheral [Unknown]
  - Hepatic enzyme increased [Unknown]

NARRATIVE: CASE EVENT DATE: 20180324
